FAERS Safety Report 5264890-5 (Version None)
Quarter: 2007Q1

REPORT INFORMATION
  Report Type: 
  Country: None (occurrence: None)
  Receive Date: 20061117
  Receipt Date: 20060817
  Transmission Date: 20070707
  Serious: Yes (Disabling, Other)
  Sender: FDA-Public Use
  Company Number: US-JNJFOC-20060801005

PATIENT
  Age: 71 Year
  Sex: Male

DRUGS (1)
  1. LEVAQUIN [Suspect]
     Indication: BIOPSY PROSTATE
     Dates: start: 20060118, end: 20060124

REACTIONS (2)
  - MUSCULOSKELETAL PAIN [None]
  - TENDON RUPTURE [None]
